FAERS Safety Report 9462285 (Version 2)
Quarter: 2015Q2

REPORT INFORMATION
  Report Type: Spontaneous
  Country: US (occurrence: US)
  Receive Date: 20130816
  Receipt Date: 20150428
  Transmission Date: 20150821
  Serious: Yes (Hospitalization, Congenital Anomaly, Other)
  Sender: FDA-Public Use
  Company Number: US-ELI_LILLY_AND_COMPANY-US201308004446

PATIENT

DRUGS (19)
  1. PERCOCET                           /00446701/ [Concomitant]
     Active Substance: ACETAMINOPHEN\OXYCODONE HYDROCHLORIDE\OXYCODONE TEREPHTHALATE
     Route: 064
  2. POTASSIUM CHLORIDE. [Concomitant]
     Active Substance: POTASSIUM CHLORIDE
     Route: 064
  3. ALBUTEROL                          /00139501/ [Concomitant]
     Active Substance: ALBUTEROL
     Route: 064
  4. PROZAC [Suspect]
     Active Substance: FLUOXETINE HYDROCHLORIDE
     Dosage: UNK UNK, UNKNOWN
     Route: 064
  5. LABETALOL [Concomitant]
     Active Substance: LABETALOL\LABETALOL HYDROCHLORIDE
     Route: 064
  6. DEMEROL [Concomitant]
     Active Substance: MEPERIDINE HYDROCHLORIDE
     Route: 064
  7. ANCEF [Concomitant]
     Active Substance: CEFAZOLIN SODIUM
     Route: 064
  8. GENTAMYCIN                         /00047101/ [Concomitant]
     Active Substance: GENTAMICIN
     Route: 064
  9. UNASYN [Concomitant]
     Active Substance: AMPICILLIN SODIUM\SULBACTAM SODIUM
     Route: 064
  10. DIOVAN [Concomitant]
     Active Substance: VALSARTAN
     Route: 064
  11. ZOFRAN                             /00955301/ [Concomitant]
     Active Substance: ONDANSETRON HYDROCHLORIDE
     Route: 064
  12. AUGMENTIN [Concomitant]
     Active Substance: AMOXICILLIN\CLAVULANATE POTASSIUM
     Route: 064
  13. HYDROCHLOROTHIAZIDE. [Concomitant]
     Active Substance: HYDROCHLOROTHIAZIDE
     Route: 064
  14. PHENERGAN [Concomitant]
     Active Substance: PROMETHAZINE HYDROCHLORIDE
     Route: 064
  15. NEOSPORIN [Concomitant]
     Active Substance: BACITRACIN ZINC\NEOMYCIN SULFATE\POLYMYXIN B SULFATE
     Route: 064
  16. PRENAT CI [Concomitant]
     Route: 064
  17. MONUROL [Concomitant]
     Active Substance: FOSFOMYCIN TROMETHAMINE
     Route: 064
  18. FENTANYL. [Concomitant]
     Active Substance: FENTANYL
     Route: 065
  19. STADOL [Concomitant]
     Active Substance: BUTORPHANOL TARTRATE
     Route: 064

REACTIONS (12)
  - Disturbance of thermoregulation of newborn [Recovered/Resolved]
  - Cleft palate [Unknown]
  - Hypoacusis [Unknown]
  - Feeding disorder neonatal [Unknown]
  - Foetal exposure timing unspecified [Recovered/Resolved]
  - Premature baby [Unknown]
  - Developmental delay [Unknown]
  - Macrosomia [Unknown]
  - Congenital cardiovascular anomaly [Unknown]
  - Respiratory distress [Recovered/Resolved]
  - VIIIth nerve lesion [Unknown]
  - Umbilical cord around neck [Recovered/Resolved]
